FAERS Safety Report 19083283 (Version 1)
Quarter: 2021Q2

REPORT INFORMATION
  Report Type: Report from Study
  Country: AU (occurrence: AU)
  Receive Date: 20210401
  Receipt Date: 20210401
  Transmission Date: 20210717
  Serious: Yes (Hospitalization, Other)
  Sender: FDA-Public Use
  Company Number: NVSC2020AU312001

PATIENT
  Age: 10 Month
  Sex: Male
  Weight: 8.42 kg

DRUGS (2)
  1. OMEPRAZOLE. [Concomitant]
     Active Substance: OMEPRAZOLE
     Indication: PRODUCT USED FOR UNKNOWN INDICATION
     Dosage: UNK
     Route: 065
     Dates: start: 20201127
  2. ZOLGENSMA [Suspect]
     Active Substance: ONASEMNOGENE ABEPARVOVEC-XIOI
     Indication: SPINAL MUSCULAR ATROPHY
     Dosage: 44 ML, ONCE/SINGLE
     Route: 042
     Dates: start: 20201021

REACTIONS (31)
  - Dyspnoea [Not Recovered/Not Resolved]
  - Vomiting [Unknown]
  - Haematemesis [Recovered/Resolved]
  - Disease progression [Not Recovered/Not Resolved]
  - Oxygen saturation decreased [Unknown]
  - Aspartate aminotransferase increased [Unknown]
  - Rash macular [Unknown]
  - Restlessness [Not Recovered/Not Resolved]
  - Dysphonia [Not Recovered/Not Resolved]
  - Gastric ulcer [Unknown]
  - Hepatic enzyme increased [Recovered/Resolved with Sequelae]
  - Pneumonia [Unknown]
  - Secretion discharge [Not Recovered/Not Resolved]
  - Contusion [Not Recovered/Not Resolved]
  - Dysphagia [Unknown]
  - Cough [Unknown]
  - Hyperhidrosis [Not Recovered/Not Resolved]
  - Emotional distress [Unknown]
  - Erythema [Recovered/Resolved]
  - Hepatic enzyme increased [Recovered/Resolved]
  - Feeling abnormal [Not Recovered/Not Resolved]
  - Pyrexia [Recovered/Resolved]
  - Somnolence [Recovered/Resolved]
  - Hepatomegaly [Recovered/Resolved with Sequelae]
  - Vomiting [Recovering/Resolving]
  - Spinal muscular atrophy [Not Recovered/Not Resolved]
  - Transaminases increased [Not Recovered/Not Resolved]
  - Alanine aminotransferase increased [Unknown]
  - Pain [Unknown]
  - Discomfort [Unknown]
  - Fatigue [Unknown]

NARRATIVE: CASE EVENT DATE: 20201021
